FAERS Safety Report 19798674 (Version 1)
Quarter: 2021Q3

REPORT INFORMATION
  Report Type: Spontaneous
  Country: CA (occurrence: CA)
  Receive Date: 20210907
  Receipt Date: 20210907
  Transmission Date: 20211014
  Serious: Yes (Hospitalization)
  Sender: FDA-Public Use
  Company Number: CA-SEPTODONT-2021006495

PATIENT
  Age: 64 Year
  Sex: Female

DRUGS (1)
  1. XYLOCAINE [Suspect]
     Active Substance: LIDOCAINE HYDROCHLORIDE
     Route: 065

REACTIONS (2)
  - Hypersensitivity [Recovered/Resolved]
  - Chest discomfort [Recovered/Resolved]
